FAERS Safety Report 16077200 (Version 1)
Quarter: 2019Q1

REPORT INFORMATION
  Report Type: Spontaneous
  Country: US (occurrence: US)
  Receive Date: 20190315
  Receipt Date: 20190315
  Transmission Date: 20190418
  Serious: No
  Sender: FDA-Public Use
  Company Number: US-BAYER-2019-052304

PATIENT

DRUGS (9)
  1. HYDROCODONE [Concomitant]
     Active Substance: HYDROCODONE
  2. NAPROXEN. [Concomitant]
     Active Substance: NAPROXEN
  3. MORPHINE SULFATE. [Concomitant]
     Active Substance: MORPHINE SULFATE
  4. ONDANSETRON [Concomitant]
     Active Substance: ONDANSETRON
  5. PREGABALIN. [Concomitant]
     Active Substance: PREGABALIN
  6. CODEINE [Concomitant]
     Active Substance: CODEINE
  7. BAYER ASPIRIN [Suspect]
     Active Substance: ASPIRIN
  8. ALEVE [Suspect]
     Active Substance: NAPROXEN SODIUM
  9. ACETAMINOPHEN. [Concomitant]
     Active Substance: ACETAMINOPHEN

REACTIONS (3)
  - Drug hypersensitivity [Unknown]
  - Nausea [Unknown]
  - Hypersensitivity [Unknown]
